FAERS Safety Report 23483758 (Version 1)
Quarter: 2024Q1

REPORT INFORMATION
  Report Type: Spontaneous
  Country: US (occurrence: US)
  Receive Date: 20240205
  Receipt Date: 20240205
  Transmission Date: 20240410
  Serious: No
  Sender: FDA-Public Use
  Company Number: US-LUNDBECK-DKLU3072147

PATIENT
  Age: 45 Year
  Sex: Female

DRUGS (20)
  1. VYEPTI [Suspect]
     Active Substance: EPTINEZUMAB-JJMR
     Indication: Migraine
     Dates: start: 20230929
  2. ATENOLOL-CHLORTHALIDONE 50-25 MG [Concomitant]
     Indication: Product used for unknown indication
     Dosage: 50-25 MG
     Route: 048
  3. DOXEPIN HCL [Concomitant]
     Active Substance: DOXEPIN HYDROCHLORIDE
     Indication: Product used for unknown indication
     Route: 048
  4. BREO ELLIPTA INHALATION AEROSOL POWDER 200-25 MCG/ACT [Concomitant]
     Indication: Product used for unknown indication
     Dosage: 200-25 MCG/ACT
  5. FLUTICASONE PROPIONATE 50 MCG/ACT [Concomitant]
     Indication: Product used for unknown indication
     Dosage: 50 MCG/ACT 2 SQUIRTS PER SIDE
     Route: 045
  6. GABAPENTIN [Concomitant]
     Active Substance: GABAPENTIN
     Indication: Product used for unknown indication
     Route: 048
  7. HAIR/SKIN/NAILS [Concomitant]
     Indication: Product used for unknown indication
     Route: 048
  8. KETOROLAC TROMETHAMINE 30 MG/ML [Concomitant]
     Indication: Product used for unknown indication
     Dosage: 30 MG/ML
  9. KP DIPHENHYDRAMINE HCL [Concomitant]
     Indication: Product used for unknown indication
     Route: 048
  10. LEVOTHYROXINE SODIUM [Concomitant]
     Active Substance: LEVOTHYROXINE SODIUM
     Indication: Product used for unknown indication
     Route: 048
  11. LIDOCAINE [Concomitant]
     Active Substance: LIDOCAINE
     Indication: Product used for unknown indication
     Route: 061
  12. LORATADINE [Concomitant]
     Active Substance: LORATADINE
     Indication: Product used for unknown indication
     Route: 048
  13. MONTELUKAST SODIUM [Concomitant]
     Active Substance: MONTELUKAST SODIUM
     Indication: Product used for unknown indication
     Route: 048
  14. VITAMINS [Concomitant]
     Active Substance: VITAMINS
     Indication: Product used for unknown indication
     Route: 048
  15. POTASSIUM CHLORIDE CRYSTALS ER [Concomitant]
     Indication: Product used for unknown indication
     Route: 048
  16. QUETIAPINE FUMARATE [Concomitant]
     Active Substance: QUETIAPINE FUMARATE
     Indication: Product used for unknown indication
     Route: 048
  17. VITAMIN D3 SUPER STRENGTH [Concomitant]
     Indication: Product used for unknown indication
     Route: 048
  18. SPRIX NASAL SOLUTION [Concomitant]
     Indication: Product used for unknown indication
     Dosage: 15.75 MG/SPRAY
     Route: 045
  19. TIZANIDINE HYDROCHLORIDE [Concomitant]
     Active Substance: TIZANIDINE HYDROCHLORIDE
     Indication: Product used for unknown indication
     Route: 048
  20. VENTOLIN HFA [Concomitant]
     Active Substance: ALBUTEROL SULFATE
     Indication: Product used for unknown indication
     Dosage: 108 (90 BASE) M

REACTIONS (1)
  - Blood pressure increased [Not Recovered/Not Resolved]
